APPROVED DRUG PRODUCT: UROVIST SODIUM 300
Active Ingredient: DIATRIZOATE SODIUM
Strength: 50%
Dosage Form/Route: INJECTABLE;INJECTION
Application: A087725 | Product #001
Applicant: BAYER HEALTHCARE PHARMACEUTICALS INC
Approved: Sep 23, 1982 | RLD: No | RS: No | Type: DISCN